FAERS Safety Report 7999038-7 (Version None)
Quarter: 2011Q4

REPORT INFORMATION
  Report Type: 
  Country: None (occurrence: None)
  Receive Date: 20111221
  Receipt Date: 20111209
  Transmission Date: 20120403
  Serious: Yes (Death)
  Sender: FDA-Public Use
  Company Number: US-CELGENEUS-163-21880-11110039

PATIENT
  Sex: Female

DRUGS (1)
  1. REVLIMID [Suspect]

REACTIONS (1)
  - MULTIPLE MYELOMA [None]
